FAERS Safety Report 18369903 (Version 3)
Quarter: 2020Q4

REPORT INFORMATION
  Report Type: Report from Study
  Country: GB (occurrence: GB)
  Receive Date: 20201012
  Receipt Date: 20201119
  Transmission Date: 20210114
  Serious: Yes (Hospitalization)
  Sender: FDA-Public Use
  Company Number: GB-ROCHE-2690780

PATIENT
  Age: 81 Year
  Sex: Male
  Weight: 77.4 kg

DRUGS (4)
  1. BEVACIZUMAB. [Suspect]
     Active Substance: BEVACIZUMAB
     Indication: PLEURAL MESOTHELIOMA MALIGNANT
     Dosage: ON 10/SEP/2020, HE RECEIVED LAST DOSE OF BEVACIZUMAB (1100 MG) PRIOR TO ONSET OF ADVERSE EVENT.?400
     Route: 042
     Dates: start: 20200910
  2. CARBOPLATIN. [Suspect]
     Active Substance: CARBOPLATIN
     Indication: PLEURAL MESOTHELIOMA MALIGNANT
     Dosage: AUC 5?ON 10/SEP/2020, HE RECEIVED DOSE OF CARBOPLATIN (500 MG) PRIOR TO ONSET OF SERIOUS ADVERSE EVE
     Route: 042
     Dates: start: 20200910
  3. ATEZOLIZUMAB. [Suspect]
     Active Substance: ATEZOLIZUMAB
     Indication: PLEURAL MESOTHELIOMA MALIGNANT
     Dosage: 1200 MG/20 ML?ON 10/SEP/2020, HE RECEIVED LAST DOSE OF ATEZOLIZUMAB (1200 MG) PRIOR TO ONSET OF SERI
     Route: 042
     Dates: start: 20200910
  4. PEMETREXED. [Suspect]
     Active Substance: PEMETREXED
     Indication: PLEURAL MESOTHELIOMA MALIGNANT
     Dosage: ON 10/SEP/2020, HE RECEIVED LAST DOSE OF PEMETREXED (1000 MG) PRIOR TO ONSET OF SERIOUS ADVERSE EVEN
     Route: 042
     Dates: start: 20200910

REACTIONS (1)
  - Pyrexia [Recovered/Resolved]

NARRATIVE: CASE EVENT DATE: 20200924
